FAERS Safety Report 7105282-3 (Version None)
Quarter: 2010Q4

REPORT INFORMATION
  Report Type: 
  Country: None (occurrence: None)
  Receive Date: 20101110
  Receipt Date: 20101026
  Transmission Date: 20110411
  Serious: Yes (Hospitalization)
  Sender: FDA-Public Use
  Company Number: 2010-2324

PATIENT
  Age: 12 Year
  Sex: Male
  Weight: 24.4 kg

DRUGS (4)
  1. INCRELEX [Suspect]
     Indication: GROWTH RETARDATION
     Dosage: SEE IMAGE, SUBCUTANEOUS
     Route: 058
     Dates: start: 20100303, end: 20100306
  2. INCRELEX [Suspect]
     Indication: GROWTH RETARDATION
     Dosage: SEE IMAGE, SUBCUTANEOUS
     Route: 058
     Dates: start: 20100306, end: 20100309
  3. INCRELEX [Suspect]
     Indication: GROWTH RETARDATION
     Dosage: SEE IMAGE, SUBCUTANEOUS
     Route: 058
     Dates: start: 20100309, end: 20100623
  4. ZYRTEC [Concomitant]

REACTIONS (1)
  - LYMPHADENOPATHY [None]
